FAERS Safety Report 19383822 (Version 1)
Quarter: 2021Q2

REPORT INFORMATION
  Report Type: Spontaneous
  Country: US (occurrence: US)
  Receive Date: 20210608
  Receipt Date: 20210608
  Transmission Date: 20210717
  Serious: No
  Sender: FDA-Public Use
  Company Number: US-ORGANON-2001USA008021

PATIENT
  Age: 18 Year
  Sex: Male

DRUGS (3)
  1. OMALIZUMAB. [Concomitant]
     Active Substance: OMALIZUMAB
     Indication: URTICARIA CHOLINERGIC
  2. MONTELUKAST SODIUM. [Suspect]
     Active Substance: MONTELUKAST SODIUM
     Indication: URTICARIA CHOLINERGIC
     Dosage: HIGH DOSE
     Route: 048
  3. DAPSONE. [Concomitant]
     Active Substance: DAPSONE
     Indication: URTICARIA CHOLINERGIC

REACTIONS (1)
  - Product use in unapproved indication [Unknown]
